FAERS Safety Report 7274478-2 (Version None)
Quarter: 2011Q1

REPORT INFORMATION
  Report Type: 
  Country: None (occurrence: None)
  Receive Date: 20110204
  Receipt Date: 20110131
  Transmission Date: 20110831
  Serious: No
  Sender: FDA-Public Use
  Company Number: US-PFIZER INC-2011022395

PATIENT
  Sex: Female

DRUGS (1)
  1. ADVIL [Suspect]
     Indication: EPICONDYLITIS
     Dosage: 200 MG, 5X/DAY
     Route: 048
     Dates: start: 20110126, end: 20110128

REACTIONS (1)
  - RASH [None]
